FAERS Safety Report 6174633-9 (Version None)
Quarter: 2009Q2

REPORT INFORMATION
  Report Type: 
  Country: None (occurrence: None)
  Receive Date: 20090430
  Receipt Date: 20090415
  Transmission Date: 20091009
  Serious: Yes (Hospitalization, Other)
  Sender: FDA-Public Use
  Company Number: US-PFIZER INC-2009205082

PATIENT
  Sex: Male

DRUGS (3)
  1. SOLU-MEDROL [Suspect]
     Dosage: UNK
     Route: 042
  2. BETASERON [Suspect]
     Indication: RELAPSING-REMITTING MULTIPLE SCLEROSIS
     Dosage: 8 MIU, UNK
     Route: 058
     Dates: start: 20060528
  3. IMURAN [Suspect]
     Indication: NERVOUS SYSTEM DISORDER

REACTIONS (7)
  - ABASIA [None]
  - CENTRAL NERVOUS SYSTEM LESION [None]
  - INGROWING NAIL [None]
  - OSTEONECROSIS [None]
  - PLATELET COUNT DECREASED [None]
  - PYREXIA [None]
  - SPEECH DISORDER [None]
